FAERS Safety Report 21822969 (Version 2)
Quarter: 2025Q1

REPORT INFORMATION
  Report Type: Spontaneous
  Country: US (occurrence: US)
  Receive Date: 20230105
  Receipt Date: 20250103
  Transmission Date: 20250409
  Serious: No
  Sender: AMNEAL
  Company Number: US-AMNEAL PHARMACEUTICALS-2022-AMRX-01477

PATIENT
  Age: 37 Year
  Sex: Female
  Weight: 67.6 kg

DRUGS (5)
  1. ACTIVELLA [Suspect]
     Active Substance: ESTRADIOL\NORETHINDRONE ACETATE
     Indication: Uterine fibrosis
     Dosage: UNK UNK, 1 /DAY
     Route: 048
     Dates: start: 20190710, end: 20200611
  2. ELAGOLIX [Suspect]
     Active Substance: ELAGOLIX
     Indication: Uterine fibrosis
     Dosage: 300 MILLIGRAM, 1 /DAY
     Route: 048
     Dates: start: 20190710, end: 20200611
  3. ELAGOLIX [Suspect]
     Active Substance: ELAGOLIX
     Dosage: 300 MILLIGRAM, 1 /DAY
     Route: 048
     Dates: start: 20200611
  4. CHOLECALCIFEROL [Concomitant]
     Active Substance: CHOLECALCIFEROL
     Indication: Vitamin D decreased
     Dosage: 2000 INTERNATIONAL UNIT, 1 /DAY
     Route: 048
     Dates: start: 20190805
  5. MOMETASONE FUROATE [Concomitant]
     Active Substance: MOMETASONE FUROATE
     Indication: Seasonal allergy
     Dosage: 50 MILLIGRAM, 1 /DAY
     Route: 045
     Dates: start: 202202

REACTIONS (1)
  - Deep vein thrombosis [Recovered/Resolved]

NARRATIVE: CASE EVENT DATE: 20220415
